FAERS Safety Report 4719202-X (Version None)
Quarter: 2005Q3

REPORT INFORMATION
  Report Type: 
  Country: None (occurrence: None)
  Receive Date: 20050720
  Receipt Date: 20050711
  Transmission Date: 20060218
  Serious: Yes (Other)
  Sender: FDA-Public Use
  Company Number: MEDI-0003543

PATIENT
  Age: 50 Year
  Sex: Male

DRUGS (2)
  1. ETHYOL [Suspect]
  2. RADIO THERAPY [Concomitant]

REACTIONS (3)
  - DERMATITIS BULLOUS [None]
  - PRURITUS [None]
  - TOXIC SKIN ERUPTION [None]
